FAERS Safety Report 8609280-X (Version None)
Quarter: 2012Q3

REPORT INFORMATION
  Report Type: 
  Country: None (occurrence: None)
  Receive Date: 20120821
  Receipt Date: 20120813
  Transmission Date: 20120928
  Serious: Yes (Hospitalization, Other)
  Sender: FDA-Public Use
  Company Number: PHFR2006GB02286

PATIENT
  Sex: Female

DRUGS (19)
  1. DIAZEPAM [Suspect]
     Dosage: UNK UKN, PRN
  2. FERROUS SULFATE TAB [Suspect]
     Dosage: 200 MG, BID
     Route: 048
  3. CLOZARIL [Suspect]
     Route: 048
     Dates: start: 20080605
  4. LACTULOSE [Suspect]
     Dosage: 10 ML, PRN
     Route: 065
  5. FUROSEMIDE [Concomitant]
     Indication: HYPERTENSION
     Dosage: UNK UKN, UNK
     Route: 065
  6. ATORVASTATIN [Concomitant]
     Dosage: UNK UKN, UNK
     Route: 065
  7. ABILIFY [Concomitant]
     Route: 065
  8. CLOZARIL [Suspect]
     Dosage: UNK UKN, UNK
     Route: 048
     Dates: start: 20060605, end: 20060713
  9. LANSOPRAZOLE [Suspect]
     Dosage: 30 MG, QD
     Route: 048
  10. PERINDOPRIL ERBUMINE [Suspect]
     Dosage: 2 MG, QD
     Route: 048
  11. FOLIC ACID [Suspect]
     Dosage: 5 MG, QD
     Route: 048
  12. CLOZARIL [Suspect]
     Indication: SCHIZOPHRENIA
     Dosage: 250 MG, QD
     Route: 048
     Dates: start: 20050501, end: 20050519
  13. TRIMETHOPRIM [Suspect]
     Indication: URINARY TRACT INFECTION
     Dosage: UNK UKN, UNK
  14. CLOZAPINE [Suspect]
     Dosage: UNK UKN, QD
  15. RAMIPRIL [Concomitant]
     Indication: HYPERTENSION
     Dosage: UNK UKN, UNK
     Route: 048
  16. BENDROFLUAZIDE [Concomitant]
     Indication: HYPERTENSION
     Route: 065
  17. CLOZARIL [Suspect]
     Dosage: 250 MG, DAILY
     Route: 048
     Dates: start: 20080519
  18. ZOPICLONE [Suspect]
     Dosage: 3.75 MG, QHS
     Route: 065
  19. CLOZAPINE [Suspect]
     Dosage: UNK UKN, UNK
     Dates: start: 20080519

REACTIONS (21)
  - SINUS TACHYCARDIA [None]
  - THROMBOCYTOSIS [None]
  - ABDOMINAL TENDERNESS [None]
  - BODY MASS INDEX DECREASED [None]
  - DIABETES MELLITUS [None]
  - WHITE BLOOD CELL DISORDER [None]
  - NEUTROPHIL COUNT INCREASED [None]
  - MEAN CELL VOLUME DECREASED [None]
  - MONOCYTE COUNT INCREASED [None]
  - WHITE BLOOD CELL COUNT INCREASED [None]
  - CONSTIPATION [None]
  - PYREXIA [None]
  - AGGRESSION [None]
  - HYPERTENSION [None]
  - CARDIAC MURMUR [None]
  - SKIN DISORDER [None]
  - STAPHYLOCOCCAL INFECTION [None]
  - MALAISE [None]
  - IRON DEFICIENCY ANAEMIA [None]
  - URINARY TRACT INFECTION [None]
  - HIATUS HERNIA [None]
